FAERS Safety Report 14700435 (Version 1)
Quarter: 2018Q1

REPORT INFORMATION
  Report Type: Spontaneous
  Country: US (occurrence: US)
  Receive Date: 20180330
  Receipt Date: 20180330
  Transmission Date: 20180509
  Serious: No
  Sender: FDA-Public Use
  Company Number: US-DRREDDYS-USA/USA/17/0093392

PATIENT
  Sex: Female
  Weight: 76 kg

DRUGS (11)
  1. AMITRIPTYLINE [Concomitant]
     Active Substance: AMITRIPTYLINE
     Indication: HEADACHE
     Route: 048
  2. GABAPENTIN. [Concomitant]
     Active Substance: GABAPENTIN
     Indication: HEADACHE
     Route: 048
  3. ITHIUM [Concomitant]
     Indication: BIPOLAR DISORDER
     Route: 048
  4. TOVIAZ [Concomitant]
     Active Substance: FESOTERODINE FUMARATE
     Indication: URINARY INCONTINENCE
     Route: 048
  5. SUMATRIPTAN INJECTION USP, 6 MG/0.5 ML [Suspect]
     Active Substance: SUMATRIPTAN
     Indication: MIGRAINE
     Route: 051
  6. VITAMIN D3 [Concomitant]
     Active Substance: CHOLECALCIFEROL
     Indication: PRODUCT USED FOR UNKNOWN INDICATION
     Route: 048
  7. VITAMIN E [Concomitant]
     Active Substance: .ALPHA.-TOCOPHEROL
     Indication: PRODUCT USED FOR UNKNOWN INDICATION
     Route: 048
  8. LEVOTHYROXINE. [Concomitant]
     Active Substance: LEVOTHYROXINE
     Indication: THYROID DISORDER
     Route: 048
  9. TIZANIDINE. [Concomitant]
     Active Substance: TIZANIDINE
     Indication: HEADACHE
     Route: 048
  10. METFORMIN [Concomitant]
     Active Substance: METFORMIN HYDROCHLORIDE
     Indication: DIABETES MELLITUS
     Route: 048
  11. PRILOSEC [Concomitant]
     Active Substance: OMEPRAZOLE MAGNESIUM
     Indication: GASTROOESOPHAGEAL REFLUX DISEASE
     Route: 048

REACTIONS (3)
  - Product physical issue [Unknown]
  - Vomiting [Unknown]
  - Drug dose omission [Unknown]
